FAERS Safety Report 17629190 (Version 11)
Quarter: 2021Q1

REPORT INFORMATION
  Report Type: Other
  Country: PA (occurrence: PA)
  Receive Date: 20200406
  Receipt Date: 20210221
  Transmission Date: 20210419
  Serious: Yes (Other)
  Sender: FDA-Public Use
  Company Number: PA-ROCHE-2576519

PATIENT
  Age: 14 Year
  Sex: Female

DRUGS (10)
  1. PREDNISOLONE. [Suspect]
     Active Substance: PREDNISOLONE
     Indication: WEIGHT INCREASED
     Route: 065
  2. XOLAIR [Suspect]
     Active Substance: OMALIZUMAB
     Route: 058
     Dates: start: 20191231
  3. MONTELUKAST SODIUM. [Concomitant]
     Active Substance: MONTELUKAST SODIUM
     Indication: ASTHMA
     Dosage: 5 MG, QD?DRUG REPORTED AS EVEREST
     Route: 065
  4. SYMBICORT [Concomitant]
     Active Substance: BUDESONIDE\FORMOTEROL FUMARATE DIHYDRATE
     Dosage: 2 PUFF IN THE NIGHT AND MORNING
  5. XOLAIR [Suspect]
     Active Substance: OMALIZUMAB
     Indication: ASTHMA
     Route: 058
     Dates: start: 20191203
  6. XOLAIR [Suspect]
     Active Substance: OMALIZUMAB
     Route: 058
  7. SERETIDE [Concomitant]
     Active Substance: FLUTICASONE PROPIONATE\SALMETEROL XINAFOATE
     Indication: ASTHMA
     Dosage: PUFF
     Route: 065
     Dates: start: 2014
  8. PREDNISOLONE. [Suspect]
     Active Substance: PREDNISOLONE
     Indication: COUGH
     Route: 065
  9. MOMETASONE [Concomitant]
     Active Substance: MOMETASONE
     Indication: PRODUCT USED FOR UNKNOWN INDICATION
     Route: 065
  10. PREDNISONE. [Concomitant]
     Active Substance: PREDNISONE
     Indication: PRODUCT USED FOR UNKNOWN INDICATION
     Route: 065
     Dates: start: 20210207

REACTIONS (34)
  - Crying [Not Recovered/Not Resolved]
  - Thirst [Not Recovered/Not Resolved]
  - Asthmatic crisis [Recovering/Resolving]
  - Nasopharyngitis [Recovering/Resolving]
  - Medication error [Unknown]
  - Rhinitis [Recovering/Resolving]
  - Thermal burn [Recovered/Resolved]
  - Headache [Not Recovered/Not Resolved]
  - Acne [Recovering/Resolving]
  - Asthma [Not Recovered/Not Resolved]
  - Fall [Unknown]
  - Cough [Recovering/Resolving]
  - Respiratory rate decreased [Recovering/Resolving]
  - Drooling [Not Recovered/Not Resolved]
  - Swelling [Not Recovered/Not Resolved]
  - Malaise [Recovering/Resolving]
  - Peripheral swelling [Not Recovered/Not Resolved]
  - Pyrexia [Not Recovered/Not Resolved]
  - Application site pain [Recovering/Resolving]
  - Mouth swelling [Not Recovered/Not Resolved]
  - Weight increased [Unknown]
  - Hypersensitivity [Unknown]
  - Contusion [Recovered/Resolved]
  - Nasal congestion [Recovering/Resolving]
  - Urticaria [Not Recovered/Not Resolved]
  - Application site swelling [Recovering/Resolving]
  - Application site hypersensitivity [Recovered/Resolved]
  - Asphyxia [Not Recovered/Not Resolved]
  - Pain in extremity [Not Recovered/Not Resolved]
  - Wheezing [Recovering/Resolving]
  - Respiratory disorder [Not Recovered/Not Resolved]
  - Agitation [Recovering/Resolving]
  - Sneezing [Not Recovered/Not Resolved]
  - Chest discomfort [Not Recovered/Not Resolved]

NARRATIVE: CASE EVENT DATE: 20200218
